FAERS Safety Report 4286351-2 (Version None)
Quarter: 2004Q1

REPORT INFORMATION
  Report Type: 
  Country: None (occurrence: None)
  Receive Date: 20040121
  Receipt Date: 20030221
  Transmission Date: 20041129
  Serious: Yes (Hospitalization)
  Sender: FDA-Public Use
  Company Number: A03200300362

PATIENT
  Age: 65 Year
  Sex: Male
  Weight: 102.0593 kg

DRUGS (8)
  1. PLAVIX [Suspect]
     Indication: CARDIAC DISORDER
     Dosage: 75 MG QD - ORAL
     Route: 048
     Dates: start: 20021001, end: 20021201
  2. ATROPINE SULFATE [Concomitant]
  3. RABEPRAZOLE SODIUM [Concomitant]
  4. PRIOXICAM [Concomitant]
  5. IBUPROFEN [Concomitant]
  6. INTERFERON ALFA-2B [Concomitant]
  7. RIBAVIRIN [Concomitant]
  8. STERTRALINE [Concomitant]

REACTIONS (3)
  - DIZZINESS [None]
  - DRUG INTERACTION [None]
  - NAUSEA [None]
